FAERS Safety Report 7756952-5 (Version None)
Quarter: 2011Q3

REPORT INFORMATION
  Report Type: 
  Country: None (occurrence: None)
  Receive Date: 20110916
  Receipt Date: 20110914
  Transmission Date: 20111222
  Serious: No
  Sender: FDA-Public Use
  Company Number: US-ABBOTT-11P-163-0845540-00

PATIENT
  Sex: Female
  Weight: 108.51 kg

DRUGS (15)
  1. METHOTREXATE [Concomitant]
     Indication: RHEUMATOID ARTHRITIS
     Dates: start: 20110601
  2. SOMA [Concomitant]
     Indication: MUSCLE SPASMS
  3. SOMA [Concomitant]
  4. VITAMIN B6 [Concomitant]
     Indication: VITAMIN SUPPLEMENTATION
  5. CENTRUM SILVER MULTIVITAMIN [Concomitant]
     Indication: VITAMIN SUPPLEMENTATION
  6. HUMIRA [Suspect]
     Dates: start: 20110101, end: 20110201
  7. HUMIRA [Suspect]
     Dates: start: 20110601, end: 20110801
  8. LISINOPRIL AND HYDROCHLOROTHIAZIDE [Concomitant]
     Indication: HYPERTENSION
  9. VITAMIN B-12 [Concomitant]
     Indication: VITAMIN SUPPLEMENTATION
  10. LOPRESSOR [Concomitant]
     Indication: HYPERTENSION
  11. AMBIEN [Concomitant]
     Indication: INSOMNIA
     Dosage: ONCE OR TWICE WEEKLY
  12. HUMIRA [Suspect]
     Indication: RHEUMATOID ARTHRITIS
     Dates: start: 20101101, end: 20110101
  13. HUMIRA [Suspect]
  14. FOLIC ACID [Concomitant]
     Indication: VITAMIN SUPPLEMENTATION
  15. HUMIRA [Suspect]
     Dates: start: 20110401, end: 20110601

REACTIONS (9)
  - URTICARIA [None]
  - RASH MACULAR [None]
  - ARTHRALGIA [None]
  - FEELING HOT [None]
  - WOUND SECRETION [None]
  - STAPHYLOCOCCUS TEST POSITIVE [None]
  - INFLAMMATION [None]
  - NODULE [None]
  - PAIN IN EXTREMITY [None]
